FAERS Safety Report 4927671-5 (Version None)
Quarter: 2006Q1

REPORT INFORMATION
  Report Type: 
  Country: None (occurrence: None)
  Receive Date: 20060228
  Receipt Date: 20060217
  Transmission Date: 20060701
  Serious: Yes (Hospitalization)
  Sender: FDA-Public Use
  Company Number: US-MERCK-0602USA05688

PATIENT
  Age: 61 Year
  Sex: Female
  Weight: 55 kg

DRUGS (3)
  1. VIOXX [Suspect]
     Indication: FIBROMYALGIA
     Route: 048
     Dates: start: 20000908, end: 20010128
  2. VIOXX [Suspect]
     Indication: ARTHRITIS
     Route: 048
     Dates: start: 20000908, end: 20010128
  3. TYLENOL (CAPLET) [Concomitant]
     Route: 065

REACTIONS (3)
  - DIARRHOEA [None]
  - HYPERTENSION [None]
  - TRANSIENT ISCHAEMIC ATTACK [None]
